FAERS Safety Report 11423260 (Version 1)
Quarter: 2015Q3

REPORT INFORMATION
  Report Type: Spontaneous
  Country: US (occurrence: None)
  Receive Date: 20150826
  Receipt Date: 20150826
  Transmission Date: 20151125
  Serious: No
  Sender: FDA-Public Use
  Company Number: None

PATIENT
  Age: 83 Year
  Sex: Male
  Weight: 80.74 kg

DRUGS (5)
  1. MULTI VITAMINS [Concomitant]
  2. VITAMIN C [Concomitant]
     Active Substance: ASCORBIC ACID
  3. TAMSULOSIN [Suspect]
     Active Substance: TAMSULOSIN
     Indication: NOCTURIA
     Route: 048
     Dates: start: 20150131, end: 20150825
  4. LUTIN [Concomitant]
  5. PROSTATE PILL [Concomitant]

REACTIONS (2)
  - Anorgasmia [None]
  - Erectile dysfunction [None]
